FAERS Safety Report 7518171-7 (Version None)
Quarter: 2011Q2

REPORT INFORMATION
  Report Type: 
  Country: None (occurrence: None)
  Receive Date: 20110512
  Receipt Date: 20110329
  Transmission Date: 20111010
  Serious: No
  Sender: FDA-Public Use
  Company Number: 1000019640

PATIENT
  Age: 59 Year
  Sex: Female

DRUGS (5)
  1. XANAX [Concomitant]
  2. BACLOFEN [Concomitant]
  3. LEXAPRO (ESCITALOPRAM OXALATE) (ESCITALOPRAM OXALATE) [Concomitant]
  4. SAVELLA [Suspect]
     Indication: FIBROMYALGIA
     Dosage: SEE IMAGE, ORAL
     Route: 048
     Dates: start: 20100401, end: 20100401
  5. ARMOUR THYROID (THYROID) (THYROID) [Concomitant]

REACTIONS (4)
  - HYPERHIDROSIS [None]
  - AGITATION [None]
  - NAUSEA [None]
  - INSOMNIA [None]
